FAERS Safety Report 12370215 (Version 1)
Quarter: 2016Q2

REPORT INFORMATION
  Report Type: Spontaneous
  Country: US (occurrence: None)
  Receive Date: 20160513
  Receipt Date: 20160513
  Transmission Date: 20160815
  Serious: Yes (Hospitalization)
  Sender: FDA-Public Use
  Company Number: None

PATIENT
  Age: 40 Year
  Sex: Female
  Weight: 78.02 kg

DRUGS (1)
  1. PRIVIGEN [Suspect]
     Active Substance: HUMAN IMMUNOGLOBULIN G
     Dosage: INTRAVENOUS (NOT OTHERWISE  SPECIFIED)
     Route: 042
     Dates: start: 20160509, end: 20160510

REACTIONS (3)
  - Headache [None]
  - Meningitis [None]
  - Vomiting [None]

NARRATIVE: CASE EVENT DATE: 20160511
